FAERS Safety Report 9733135 (Version 1)
Quarter: 2013Q4

REPORT INFORMATION
  Report Type: Spontaneous
  Country: TR (occurrence: TR)
  Receive Date: 20131205
  Receipt Date: 20131205
  Transmission Date: 20140711
  Serious: Yes (Hospitalization, Other)
  Sender: FDA-Public Use
  Company Number: TR-ACTAVIS-2013-22021

PATIENT
  Age: 64 Year
  Sex: Female

DRUGS (2)
  1. LANSOPRAZOLE (UNKNOWN) [Suspect]
     Indication: PRODUCT USED FOR UNKNOWN INDICATION
     Dosage: 30 MG, DAILY
     Route: 065
  2. PHENYTOIN (AMALLC) [Suspect]
     Indication: CONVULSION PROPHYLAXIS
     Dosage: 600 MG, DAILY
     Route: 065

REACTIONS (3)
  - Toxic epidermal necrolysis [Recovering/Resolving]
  - Confusional state [Recovering/Resolving]
  - Coma scale abnormal [Recovering/Resolving]
